FAERS Safety Report 17578761 (Version 1)
Quarter: 2020Q1

REPORT INFORMATION
  Report Type: Report from Study
  Country: US (occurrence: US)
  Receive Date: 20200325
  Receipt Date: 20200325
  Transmission Date: 20200409
  Serious: Yes (Other)
  Sender: FDA-Public Use
  Company Number: US-ROCHE-2492667

PATIENT
  Age: 62 Year
  Sex: Female

DRUGS (22)
  1. NORCO [Concomitant]
     Active Substance: ACETAMINOPHEN\HYDROCODONE BITARTRATE
  2. ESTRADIOL. [Concomitant]
     Active Substance: ESTRADIOL
  3. LIDOCAINE. [Concomitant]
     Active Substance: LIDOCAINE
  4. ALL OTHER NON-THERAPEUTIC PRODUCTS [Concomitant]
     Active Substance: UNSPECIFIED INGREDIENT
  5. LIPITOR [Concomitant]
     Active Substance: ATORVASTATIN CALCIUM
  6. MAXALT-MLT [Concomitant]
     Active Substance: RIZATRIPTAN BENZOATE
  7. PROTONIX [Concomitant]
     Active Substance: PANTOPRAZOLE SODIUM
  8. GABAPENTIN. [Concomitant]
     Active Substance: GABAPENTIN
  9. REQUIP XL [Concomitant]
     Active Substance: ROPINIROLE HYDROCHLORIDE
  10. KEFLEX [Concomitant]
     Active Substance: CEPHALEXIN
  11. TRAZODONE [Concomitant]
     Active Substance: TRAZODONE HYDROCHLORIDE
  12. LISINOPRIL. [Concomitant]
     Active Substance: LISINOPRIL
  13. GLIPIZIDE. [Concomitant]
     Active Substance: GLIPIZIDE
     Indication: DIABETES MELLITUS
  14. VALIUM [Concomitant]
     Active Substance: DIAZEPAM
  15. VALACYCLOVIR [Concomitant]
     Active Substance: VALACYCLOVIR HYDROCHLORIDE
  16. OCREVUS [Suspect]
     Active Substance: OCRELIZUMAB
     Indication: RELAPSING-REMITTING MULTIPLE SCLEROSIS
     Dosage: ON 26/SEP/2019, SHE RECEIVED HER SECOND INFUSION OF OCRELIZUMAB.
     Route: 042
     Dates: start: 20190912
  17. MODAFINIL. [Concomitant]
     Active Substance: MODAFINIL
  18. BACLOFEN. [Concomitant]
     Active Substance: BACLOFEN
  19. CYMBALTA [Concomitant]
     Active Substance: DULOXETINE HYDROCHLORIDE
  20. CALCIUM CARBONATE. [Concomitant]
     Active Substance: CALCIUM CARBONATE
  21. SYNTHROID [Concomitant]
     Active Substance: LEVOTHYROXINE SODIUM
  22. STOOL SOFTENER (DOCUSATE) [Concomitant]
     Active Substance: DOCUSATE

REACTIONS (17)
  - Pain [Not Recovered/Not Resolved]
  - Cognitive disorder [Unknown]
  - Urinary tract infection [Not Recovered/Not Resolved]
  - Neuropathy peripheral [Not Recovered/Not Resolved]
  - Intervertebral disc degeneration [Not Recovered/Not Resolved]
  - Memory impairment [Not Recovered/Not Resolved]
  - Multiple sclerosis relapse [Unknown]
  - Glycosylated haemoglobin increased [Not Recovered/Not Resolved]
  - CSF protein increased [Not Recovered/Not Resolved]
  - CSF glucose increased [Not Recovered/Not Resolved]
  - Headache [Recovered/Resolved]
  - Vertebral lesion [Not Recovered/Not Resolved]
  - Fall [Unknown]
  - White blood cell count decreased [Not Recovered/Not Resolved]
  - Intervertebral disc protrusion [Not Recovered/Not Resolved]
  - Vitamin D deficiency [Recovered/Resolved]
  - Weight increased [Not Recovered/Not Resolved]

NARRATIVE: CASE EVENT DATE: 20190912
